FAERS Safety Report 15691500 (Version 1)
Quarter: 2018Q4

REPORT INFORMATION
  Report Type: Spontaneous
  Country: ES (occurrence: ES)
  Receive Date: 20181205
  Receipt Date: 20181205
  Transmission Date: 20190205
  Serious: Yes (Other)
  Sender: FDA-Public Use
  Company Number: ES-ANIPHARMA-2018-ES-000107

PATIENT
  Age: 87 Year
  Sex: Female
  Weight: 40 kg

DRUGS (20)
  1. CARVEDILOL. [Suspect]
     Active Substance: CARVEDILOL
     Dosage: 6,25MG
     Route: 065
  2. DEPRAX (TRAZODONE HYDROCHLORIDE) [Suspect]
     Active Substance: TRAZODONE HYDROCHLORIDE
     Dosage: 100MG
     Route: 065
  3. PROPOFOL. [Suspect]
     Active Substance: PROPOFOL
     Dosage: UNK
     Route: 065
     Dates: start: 201810
  4. CIMASCAL (CALCIUM CARBONATE) [Suspect]
     Active Substance: CALCIUM CARBONATE
     Dosage: 1500MG/400UIU
     Route: 065
  5. NITROPLAST [Suspect]
     Active Substance: NITROGLYCERIN
     Dosage: 10MG/24H
     Route: 065
  6. BRIDION [Suspect]
     Active Substance: SUGAMMADEX
     Dosage: 2 MG/KG, (180 MG), ONCE/SINGLE ADMINISTRATION
     Route: 042
     Dates: start: 20181006, end: 20181006
  7. VENLAFAXINE [Suspect]
     Active Substance: VENLAFAXINE HYDROCHLORIDE
     Dosage: 75MG
     Route: 065
  8. HALOPERIDOL. [Suspect]
     Active Substance: HALOPERIDOL
     Dosage: 2 MG/ML ORAL SOLUTION/SUSPENSION DROPS
     Route: 065
  9. ROCURONIUM BROMIDE. [Suspect]
     Active Substance: ROCURONIUM BROMIDE
     Dosage: UNK
     Route: 065
     Dates: start: 201810
  10. LORAZEPAM. [Suspect]
     Active Substance: LORAZEPAM
     Dosage: 5MG
     Route: 065
  11. DESFLURANE. [Suspect]
     Active Substance: DESFLURANE
     Dosage: UNK
     Route: 065
     Dates: start: 201810
  12. OMEPRAZOLE. [Suspect]
     Active Substance: OMEPRAZOLE
     Dosage: 20MG
     Route: 048
  13. CANDESARTAN. [Suspect]
     Active Substance: CANDESARTAN
     Indication: PRODUCT USED FOR UNKNOWN INDICATION
     Dosage: 6MG
     Route: 048
  14. FENTANYL. [Suspect]
     Active Substance: FENTANYL
     Dosage: 50 MICROGRAMS/H
     Route: 065
     Dates: start: 201810
  15. MANIDIPINE HYDROCHLORIDE [Suspect]
     Active Substance: MANIDIPINE HYDROCHLORIDE
     Dosage: 10MG
     Route: 065
  16. TORASEMIDE [Suspect]
     Active Substance: TORSEMIDE
     Dosage: 5MG
     Route: 065
  17. CAFINITRINA [CAFFEINE CITRATE\NITROGLYCERIN\PHENOBARBITAL] [Suspect]
     Active Substance: CAFFEINE CITRATE\NITROGLYCERIN\PHENOBARBITAL
     Dosage: 20
     Route: 065
  18. ALPRAZOLAM. [Suspect]
     Active Substance: ALPRAZOLAM
     Dosage: 0.5 MG
     Route: 065
  19. PROLIA [Suspect]
     Active Substance: DENOSUMAB
     Dosage: 60MG
     Route: 065
  20. ADIRO [Suspect]
     Active Substance: ASPIRIN
     Dosage: UNK
     Route: 065

REACTIONS (2)
  - Cardiac arrest [Unknown]
  - Bradycardia [Unknown]

NARRATIVE: CASE EVENT DATE: 20181006
